FAERS Safety Report 18355558 (Version 1)
Quarter: 2020Q4

REPORT INFORMATION
  Report Type: Spontaneous
  Country: US (occurrence: US)
  Receive Date: 20201007
  Receipt Date: 20201007
  Transmission Date: 20210114
  Serious: Yes (Death, Hospitalization, Other)
  Sender: FDA-Public Use
  Company Number: None

PATIENT
  Age: 58 Year
  Sex: Male

DRUGS (1)
  1. KLONOPIN [Suspect]
     Active Substance: CLONAZEPAM
     Indication: PRODUCT USED FOR UNKNOWN INDICATION
     Dates: start: 20171120, end: 20191116

REACTIONS (6)
  - Drug titration [None]
  - Completed suicide [None]
  - Emotional distress [None]
  - Self-injurious ideation [None]
  - Pain [None]
  - Drug titration error [None]

NARRATIVE: CASE EVENT DATE: 20171130
